FAERS Safety Report 5962561-0 (Version None)
Quarter: 2008Q4

REPORT INFORMATION
  Report Type: 
  Country: None (occurrence: None)
  Receive Date: 20081121
  Receipt Date: 20081112
  Transmission Date: 20090506
  Serious: Yes (Other)
  Sender: FDA-Public Use
  Company Number: JP-PFIZER INC-2008095686

PATIENT
  Age: 14 Year

DRUGS (1)
  1. ZOLOFT [Suspect]
     Indication: ASPERGER'S DISORDER
     Dosage: DAILY DOSE:50MG
     Route: 048

REACTIONS (3)
  - DEPRESSION [None]
  - OBSESSIVE-COMPULSIVE DISORDER [None]
  - SOCIAL AVOIDANT BEHAVIOUR [None]
